FAERS Safety Report 22517198 (Version 1)
Quarter: 2023Q2

REPORT INFORMATION
  Report Type: Spontaneous
  Country: CN (occurrence: CN)
  Receive Date: 20230603
  Receipt Date: 20230603
  Transmission Date: 20230722
  Serious: Yes (Hospitalization)
  Sender: FDA-Public Use
  Company Number: CN-AMGEN-CHNSP2023092454

PATIENT

DRUGS (5)
  1. PROLIA [Suspect]
     Active Substance: DENOSUMAB
     Indication: Osteogenesis imperfecta
     Dosage: 30 MILLIGRAM, ONCE EVERY 5.5 TO 6.0 MONTHS
     Route: 058
  2. PROLIA [Suspect]
     Active Substance: DENOSUMAB
     Indication: Off label use
     Dosage: 60 MILLIGRAM, ONCE EVERY 5.5 TO 6.0 MONTHS
     Route: 058
  3. CALCIUM CARBONATE\CHOLECALCIFEROL [Concomitant]
     Active Substance: CALCIUM CARBONATE\CHOLECALCIFEROL
     Indication: Osteogenesis imperfecta
     Dosage: 300 MILLIGRAM, QD
     Route: 048
  4. CALCIUM CARBONATE\CHOLECALCIFEROL [Concomitant]
     Active Substance: CALCIUM CARBONATE\CHOLECALCIFEROL
     Dosage: 600 MILLIGRAM, QD
     Route: 048
  5. CALCITRIOL [Concomitant]
     Active Substance: CALCITRIOL
     Indication: Osteogenesis imperfecta
     Dosage: 0.25 MICROGRAM, ONCE DAILY OR EVERY OTHER DAY
     Route: 048

REACTIONS (10)
  - Hypercalcaemia [Unknown]
  - Adverse drug reaction [Unknown]
  - Cardiac discomfort [Unknown]
  - Off label use [Unknown]
  - Arthralgia [Unknown]
  - Myalgia [Recovering/Resolving]
  - Asthenia [Recovering/Resolving]
  - Pain in extremity [Recovering/Resolving]
  - Bone density decreased [Unknown]
  - Blood calcium increased [Unknown]
